FAERS Safety Report 6918948-2 (Version None)
Quarter: 2010Q3

REPORT INFORMATION
  Report Type: 
  Country: None (occurrence: None)
  Receive Date: 20100811
  Receipt Date: 20100805
  Transmission Date: 20110219
  Serious: Yes (Other)
  Sender: FDA-Public Use
  Company Number: CO-BRISTOL-MYERS SQUIBB COMPANY-15227937

PATIENT
  Age: 32 Year
  Sex: Male

DRUGS (4)
  1. REYATAZ [Suspect]
     Indication: ANTIRETROVIRAL THERAPY
     Dosage: REYATAZ 300
     Dates: start: 20090819
  2. DIDANOSINE [Suspect]
     Indication: ANTIRETROVIRAL THERAPY
     Dates: start: 20090819
  3. ABACAVIR [Suspect]
     Indication: ANTIRETROVIRAL THERAPY
     Dates: start: 20090819
  4. RITONAVIR [Suspect]
     Indication: ANTIRETROVIRAL THERAPY
     Dates: start: 20090819

REACTIONS (1)
  - HYPERBILIRUBINAEMIA [None]
